FAERS Safety Report 7424135-4 (Version None)
Quarter: 2011Q2

REPORT INFORMATION
  Report Type: 
  Country: None (occurrence: None)
  Receive Date: 20110419
  Receipt Date: 20110413
  Transmission Date: 20111010
  Serious: Yes (Hospitalization)
  Sender: FDA-Public Use
  Company Number: CHPA2011US05401

PATIENT
  Age: 81 Year
  Sex: Male
  Weight: 78.005 kg

DRUGS (1)
  1. MAALOX ANTACID/ANTIGAS MAX LIQ UNKNOWN [Suspect]
     Dosage: UNK , UNK
     Route: 048

REACTIONS (1)
  - FAECES DISCOLOURED [None]
